FAERS Safety Report 9406877 (Version 4)
Quarter: 2013Q3

REPORT INFORMATION
  Report Type: Report from Study
  Country: IN (occurrence: IN)
  Receive Date: 20130718
  Receipt Date: 20130819
  Transmission Date: 20140515
  Serious: Yes (Hospitalization)
  Sender: FDA-Public Use
  Company Number: PHHY2013IN075674

PATIENT
  Age: 63 Year
  Sex: Female

DRUGS (21)
  1. ACLASTA [Suspect]
     Indication: OSTEOPOROTIC FRACTURE
     Dosage: 5 MG PER 100 ML PER YEAR
     Route: 042
  2. ACLASTA [Suspect]
     Dosage: 5 MG PER 100 ML PER YEAR
     Route: 042
     Dates: start: 20121017
  3. DOLO                               /07386201/ [Concomitant]
     Dosage: 650 MG, TID
  4. DOLO                               /07386201/ [Concomitant]
     Dosage: 650 UNK, UNK
  5. K-TRIP FORTE [Concomitant]
     Dosage: UNK UKN, TID
  6. OMEZ//OMEPRAZOLE [Concomitant]
     Dosage: UNK UKN, ONCE/SINGLE
  7. BEPLEX FORTE [Concomitant]
     Dosage: UNK UKN, ONCE/SINGLE
  8. CLEXANE [Concomitant]
     Dosage: 4 ML, UNK
     Route: 058
  9. TRD MD [Concomitant]
     Dosage: UNK, TID
  10. SUPRADYN                           /01742801/ [Concomitant]
     Dosage: UNK UKN, ONCE/SINGLE
  11. ARACHITOL [Concomitant]
     Dosage: UNK UKN, UNK
  12. MACALVIT                           /00129401/ [Concomitant]
     Dosage: 500 MG, ONCE/SINGLE
  13. PHLOGAM [Concomitant]
     Dosage: UNK UKN, UNK
  14. PARACETAMOL [Concomitant]
     Dosage: 650 MG,3 DAYS
  15. PAN [Concomitant]
     Dosage: 20 MG, UNK
  16. SHELCAL [Concomitant]
     Dosage: 500 MG, UNK
  17. CHYMORAL                           /00087801/ [Concomitant]
     Dosage: UNK UKN, UNK
  18. LYSOFLAM [Concomitant]
     Dosage: UNK UKN, UNK
  19. RANTAC [Concomitant]
     Dosage: UNK UKN, UNK
  20. BD [Concomitant]
     Dosage: 2 ML, UNK
  21. HUSTA [Concomitant]
     Dosage: UNK UKN, UNK

REACTIONS (8)
  - Tibia fracture [Recovering/Resolving]
  - Fibula fracture [Recovering/Resolving]
  - Comminuted fracture [Unknown]
  - Arthralgia [Unknown]
  - Tenderness [Unknown]
  - Joint swelling [Unknown]
  - Fall [Recovering/Resolving]
  - Joint effusion [Unknown]
